FAERS Safety Report 7397247-1 (Version None)
Quarter: 2011Q2

REPORT INFORMATION
  Report Type: 
  Country: None (occurrence: None)
  Receive Date: 20110406
  Receipt Date: 20110208
  Transmission Date: 20111010
  Serious: Yes (Other)
  Sender: FDA-Public Use
  Company Number: US-BAYER-2011-008082

PATIENT
  Sex: Female
  Weight: 60.771 kg

DRUGS (8)
  1. DILTIAZEM HCL [Concomitant]
     Dosage: 300 MG, QD
     Route: 048
  2. RYTHMOL [Concomitant]
     Indication: PRODUCT USED FOR UNKNOWN INDICATION
     Dosage: 150 MG, TID
     Route: 048
     Dates: start: 19990101
  3. TRASYLOL [Suspect]
     Indication: MITRAL VALVE REPLACEMENT
     Dosage: UNK
     Dates: start: 20040107
  4. OMNIPAQUE 140 [Concomitant]
     Indication: CATHETERISATION CARDIAC
     Dosage: UNK
     Dates: start: 20031217
  5. LIPITOR [Concomitant]
     Indication: PRODUCT USED FOR UNKNOWN INDICATION
     Dosage: 10 MG, QD
     Route: 048
     Dates: start: 19990101
  6. ZESTRIL [Concomitant]
     Dosage: 10 MG, QD
     Route: 048
     Dates: start: 19990101
  7. COUMADIN [Concomitant]
     Dosage: 4 MG, QD
     Route: 048
     Dates: start: 19990101
  8. TRASYLOL [Suspect]
     Indication: CARDIAC OPERATION

REACTIONS (14)
  - ANHEDONIA [None]
  - FEAR [None]
  - EMOTIONAL DISTRESS [None]
  - FEAR OF DEATH [None]
  - PAIN [None]
  - RENAL INJURY [None]
  - NERVOUSNESS [None]
  - DISABILITY [None]
  - MULTI-ORGAN FAILURE [None]
  - RENAL FAILURE [None]
  - ANXIETY [None]
  - UNEVALUABLE EVENT [None]
  - DEPRESSION [None]
  - INJURY [None]
